FAERS Safety Report 8278987-9 (Version None)
Quarter: 2012Q2

REPORT INFORMATION
  Report Type: 
  Country: None (occurrence: None)
  Receive Date: 20120412
  Receipt Date: 20110317
  Transmission Date: 20120825
  Serious: No
  Sender: FDA-Public Use
  Company Number: US-ASTRAZENECA-2011SE15176

PATIENT
  Age: 61 Year
  Sex: Female
  Weight: 47.2 kg

DRUGS (5)
  1. VITAMIN TAB [Concomitant]
  2. AMLODIPINE [Concomitant]
     Indication: HYPERTENSION
  3. FOSAMAX [Concomitant]
  4. CALCIUM CARBONATE [Concomitant]
  5. NEXIUM [Suspect]
     Indication: DYSPEPSIA
     Route: 048
     Dates: start: 20110201

REACTIONS (3)
  - HEART RATE INCREASED [None]
  - HORMONE LEVEL ABNORMAL [None]
  - PALPITATIONS [None]
